FAERS Safety Report 10182297 (Version 1)
Quarter: 2014Q2

REPORT INFORMATION
  Report Type: Spontaneous
  Country: US (occurrence: US)
  Receive Date: 20140520
  Receipt Date: 20140520
  Transmission Date: 20141212
  Serious: Yes (Other)
  Sender: FDA-Public Use
  Company Number: US-BRISTOL-MYERS SQUIBB COMPANY-20723508

PATIENT
  Age: 75 Year
  Sex: Female
  Weight: 63.26 kg

DRUGS (1)
  1. ELIQUIS [Suspect]
     Dosage: TABLETS

REACTIONS (2)
  - Fall [Unknown]
  - Back injury [Unknown]
